FAERS Safety Report 8668990 (Version 3)
Quarter: 2013Q4

REPORT INFORMATION
  Report Type: Spontaneous
  Country: GB (occurrence: GB)
  Receive Date: 20120717
  Receipt Date: 20131101
  Transmission Date: 20140711
  Serious: Yes (Other)
  Sender: FDA-Public Use
  Company Number: GB-009507513-2012SP029574

PATIENT
  Sex: 0

DRUGS (1)
  1. NEOCLARITYN [Suspect]
     Indication: PRODUCT USED FOR UNKNOWN INDICATION
     Dosage: UNK
     Dates: end: 201109

REACTIONS (3)
  - Epilepsy [Unknown]
  - Pyrexia [Unknown]
  - Fatigue [Unknown]
